FAERS Safety Report 6298748-X (Version None)
Quarter: 2009Q3

REPORT INFORMATION
  Report Type: 
  Country: None (occurrence: None)
  Receive Date: 20090806
  Receipt Date: 20090729
  Transmission Date: 20100115
  Serious: Yes (Hospitalization)
  Sender: FDA-Public Use
  Company Number: US-BIOGENIDEC-2009BI021461

PATIENT
  Sex: Female
  Weight: 83 kg

DRUGS (2)
  1. AVONEX [Suspect]
     Indication: MULTIPLE SCLEROSIS
     Route: 030
     Dates: start: 20010901, end: 20030101
  2. AVONEX [Suspect]
     Route: 030
     Dates: start: 20030101

REACTIONS (7)
  - CHEST DISCOMFORT [None]
  - DYSLIPIDAEMIA [None]
  - HYPERTENSION [None]
  - MULTIPLE ALLERGIES [None]
  - PERICARDIAL EFFUSION [None]
  - SINUS DISORDER [None]
  - THROMBOSIS [None]
